FAERS Safety Report 5989375-X (Version None)
Quarter: 2008Q4

REPORT INFORMATION
  Report Type: 
  Country: None (occurrence: None)
  Receive Date: 20081205
  Receipt Date: 20081110
  Transmission Date: 20090506
  Serious: Yes (Hospitalization)
  Sender: FDA-Public Use
  Company Number: 2008S1020103

PATIENT
  Age: 28 Month
  Sex: Male
  Weight: 9 kg

DRUGS (11)
  1. FENTANYL-100 [Suspect]
     Indication: GENERAL ANAESTHESIA
     Dosage: 30 UG; ONCE
  2. NITROUS OXIDE W/ OXYGEN [Suspect]
     Indication: GENERAL ANAESTHESIA
  3. SEVOFLURANE [Concomitant]
  4. NITROUS OXIDE [Concomitant]
  5. CEFMETAZOLE [Concomitant]
  6. HYDROXYZINE [Concomitant]
  7. MIDAZOLAM HCL [Concomitant]
  8. VECURONIUM BROMIDE [Concomitant]
  9. ATROPINE [Concomitant]
  10. NEOSTIGINE [Concomitant]
  11. SEVOFLURANE [Suspect]
     Indication: GENERAL ANAESTHESIA

REACTIONS (5)
  - ACIDOSIS [None]
  - BLOOD CREATINE PHOSPHOKINASE INCREASED [None]
  - HYPERTHERMIA MALIGNANT [None]
  - HYPOXIA [None]
  - TACHYPNOEA [None]
